FAERS Safety Report 8414067-7 (Version None)
Quarter: 2012Q2

REPORT INFORMATION
  Report Type: 
  Country: None (occurrence: None)
  Receive Date: 20120323
  Receipt Date: 20110314
  Transmission Date: 20120825
  Serious: Yes (Hospitalization)
  Sender: FDA-Public Use
  Company Number: 163-21880-11022099

PATIENT
  Age: 84 Year
  Sex: Female

DRUGS (4)
  1. DECADRON [Concomitant]
  2. REVLIMID [Suspect]
     Indication: MULTIPLE MYELOMA
     Dosage: 15 MG, 1 IN 1 D, PO, 15 MG, DAILY X 21 DAYS, PO
     Route: 048
     Dates: start: 20100305, end: 20110213
  3. REVLIMID [Suspect]
     Indication: MULTIPLE MYELOMA
     Dosage: 15 MG, 1 IN 1 D, PO, 15 MG, DAILY X 21 DAYS, PO
     Route: 048
     Dates: start: 20110218
  4. ZOMETA [Concomitant]

REACTIONS (1)
  - H1N1 INFLUENZA [None]
